FAERS Safety Report 10580446 (Version 2)
Quarter: 2014Q4

REPORT INFORMATION
  Report Type: Report from Study
  Country: US (occurrence: US)
  Receive Date: 20141113
  Receipt Date: 20141206
  Transmission Date: 20150529
  Serious: Yes (Death)
  Sender: FDA-Public Use
  Company Number: US-ROCHE-1490254

PATIENT
  Age: 59 Year
  Sex: Female

DRUGS (1)
  1. AVASTIN [Suspect]
     Active Substance: BEVACIZUMAB
     Indication: PRODUCT USED FOR UNKNOWN INDICATION
     Route: 065
     Dates: start: 20140115, end: 20140423

REACTIONS (2)
  - Colon cancer metastatic [Fatal]
  - Cardiomyopathy [Fatal]

NARRATIVE: CASE EVENT DATE: 20140803
